FAERS Safety Report 4887757-0 (Version None)
Quarter: 2006Q1

REPORT INFORMATION
  Report Type: 
  Country: None (occurrence: None)
  Receive Date: 20060118
  Receipt Date: 20060104
  Transmission Date: 20060701
  Serious: Yes (Other)
  Sender: FDA-Public Use
  Company Number: 220723

PATIENT
  Age: 23 Year
  Sex: Female

DRUGS (2)
  1. RITUXAN [Suspect]
     Indication: ANAEMIA HAEMOLYTIC AUTOIMMUNE
     Dosage: UNK, 1/WKKE, UNKNOWN
     Route: 065
     Dates: start: 20040801
  2. STEROIDS NOS (STEROID NOS) [Concomitant]

REACTIONS (4)
  - INTERSTITIAL LUNG DISEASE [None]
  - LUNG NEOPLASM [None]
  - PYREXIA [None]
  - UPPER RESPIRATORY TRACT INFECTION [None]
